FAERS Safety Report 8017512-4 (Version None)
Quarter: 2011Q4

REPORT INFORMATION
  Report Type: 
  Country: None (occurrence: None)
  Receive Date: 20111228
  Receipt Date: 20111228
  Transmission Date: 20120403
  Serious: No
  Sender: FDA-Public Use
  Company Number: None

PATIENT
  Sex: Female
  Weight: 41.2773 kg

DRUGS (4)
  1. SIMVASTATIN [Concomitant]
  2. INVEGA SUSTENNA [Suspect]
     Dosage: INVEGA SUSTENNA 1 WEEK 234 MG MONTHLY 156 MG 4 MONTHS DEC 20 - MARCH
  3. RISPERDAL CONSTA [Suspect]
     Indication: ABNORMAL BEHAVIOUR
     Dosage: RISPERDAL 2 WEEKS 7 1/2 MONTHS MAY - DEC 20
  4. FOSAMAX GENERIC [Concomitant]

REACTIONS (5)
  - ALOPECIA [None]
  - BLOOD CHOLESTEROL INCREASED [None]
  - SKIN WRINKLING [None]
  - MEMORY IMPAIRMENT [None]
  - SKIN DISORDER [None]
